FAERS Safety Report 6784329-8 (Version None)
Quarter: 2010Q2

REPORT INFORMATION
  Report Type: 
  Country: None (occurrence: None)
  Receive Date: 20100622
  Receipt Date: 20100611
  Transmission Date: 20101027
  Serious: Yes (Other)
  Sender: FDA-Public Use
  Company Number: US-JNJFOC-20100603643

PATIENT
  Sex: Male
  Weight: 104.33 kg

DRUGS (15)
  1. REMICADE [Suspect]
     Indication: RHEUMATOID ARTHRITIS
     Route: 042
  2. REMICADE [Suspect]
     Indication: COLITIS ULCERATIVE
     Route: 042
  3. ALLOPURINOL [Concomitant]
     Indication: BLOOD URIC ACID
  4. VICODIN [Concomitant]
     Indication: PAIN
     Dosage: 5-7 MG AS NEEDED
  5. ASACOL [Concomitant]
     Indication: COLITIS ULCERATIVE
  6. SIMVASTATIN [Concomitant]
     Indication: BLOOD CHOLESTEROL
  7. COMPAZINE [Concomitant]
     Indication: NAUSEA
     Dosage: AS NEEDED
  8. SINGULAIR [Concomitant]
     Indication: SINUS DISORDER
  9. KAPIDEX [Concomitant]
     Indication: HYPERCHLORHYDRIA
  10. LOPID [Concomitant]
     Indication: BLOOD CHOLESTEROL
  11. DESYREL [Concomitant]
     Indication: DEPRESSION
  12. METHOTREXATE [Concomitant]
     Indication: RHEUMATOID ARTHRITIS
  13. POTASSIUM CITRATE [Concomitant]
     Indication: NEPHROLITHIASIS
  14. FLOVENT [Concomitant]
     Indication: ASTHMA
     Dosage: 100 MICROGRAMS 2 PUFFS AS NEEDED
     Route: 055
  15. ALBUTEROL [Concomitant]
     Indication: ASTHMA
     Dosage: 100 MICROGRAMS AS NEEDED
     Route: 055

REACTIONS (4)
  - DIABETES MELLITUS [None]
  - GASTRIC ULCER [None]
  - NEPHROLITHIASIS [None]
  - OSTEOPOROSIS [None]
